FAERS Safety Report 18439262 (Version 1)
Quarter: 2020Q4

REPORT INFORMATION
  Report Type: Spontaneous
  Country: US (occurrence: US)
  Receive Date: 20201029
  Receipt Date: 20201029
  Transmission Date: 20210114
  Serious: No
  Sender: FDA-Public Use
  Company Number: US-009507513-2010USA010054

PATIENT

DRUGS (1)
  1. CUBICIN [Suspect]
     Active Substance: DAPTOMYCIN
     Indication: RHABDOMYOLYSIS
     Dosage: GREATER THAN OR EQUAL TO 7.5 MG/KG BASED ON DOSING WEIGHT
     Route: 042

REACTIONS (2)
  - Overdose [Unknown]
  - Contraindicated product administered [Unknown]
